FAERS Safety Report 16614117 (Version 2)
Quarter: 2019Q3

REPORT INFORMATION
  Report Type: Report from Study
  Country: None (occurrence: US)
  Receive Date: 20190723
  Receipt Date: 20190905
  Transmission Date: 20191004
  Serious: Yes (Other)
  Sender: FDA-Public Use
  Company Number: US-ABBVIE-19K-163-2771810-00

PATIENT
  Age: 59 Year
  Sex: Male
  Weight: 97.61 kg

DRUGS (1)
  1. HUMIRA [Suspect]
     Active Substance: ADALIMUMAB
     Indication: RHEUMATOID ARTHRITIS
     Route: 058

REACTIONS (9)
  - Immunodeficiency [Unknown]
  - Haemorrhagic diathesis [Unknown]
  - Impaired healing [Not Recovered/Not Resolved]
  - Contusion [Recovering/Resolving]
  - Rheumatoid arthritis [Recovered/Resolved]
  - Procedural pain [Not Recovered/Not Resolved]
  - Hip arthroplasty [Not Recovered/Not Resolved]
  - Hip arthroplasty [Not Recovered/Not Resolved]
  - Impaired healing [Not Recovered/Not Resolved]

NARRATIVE: CASE EVENT DATE: 201808
